FAERS Safety Report 13885071 (Version 1)
Quarter: 2017Q3

REPORT INFORMATION
  Report Type: Spontaneous
  Country: US (occurrence: US)
  Receive Date: 20170821
  Receipt Date: 20170821
  Transmission Date: 20171127
  Serious: No
  Sender: FDA-Public Use
  Company Number: US-AUROBINDO-AUR-APU-2017-34125

PATIENT

DRUGS (1)
  1. ISOSULFAN BLUE INJECTION 1%(50MG/5ML) SINGLE-DOSE VIALS [Suspect]
     Active Substance: ISOSULFAN BLUE
     Indication: PRODUCT USED FOR UNKNOWN INDICATION
     Dosage: UNK
     Route: 065
     Dates: start: 20170511

REACTIONS (2)
  - Incorrect route of drug administration [Unknown]
  - Cyanosis [Unknown]
